FAERS Safety Report 21268912 (Version 3)
Quarter: 2022Q3

REPORT INFORMATION
  Report Type: Report from Study
  Country: US (occurrence: US)
  Receive Date: 20220830
  Receipt Date: 20220902
  Transmission Date: 20221026
  Serious: Yes (Hospitalization)
  Sender: FDA-Public Use
  Company Number: US-JNJFOC-20220845807

PATIENT
  Age: 52 Year
  Sex: Female
  Weight: 83.2 kg

DRUGS (5)
  1. EPOPROSTENOL SODIUM [Suspect]
     Active Substance: EPOPROSTENOL SODIUM
     Indication: Pulmonary arterial hypertension
     Route: 042
  2. EPOPROSTENOL SODIUM [Suspect]
     Active Substance: EPOPROSTENOL SODIUM
     Route: 042
  3. EPOPROSTENOL SODIUM [Suspect]
     Active Substance: EPOPROSTENOL SODIUM
     Route: 042
  4. AMBRISENTAN [Concomitant]
     Active Substance: AMBRISENTAN
  5. TADALAFIL [Concomitant]
     Active Substance: TADALAFIL

REACTIONS (8)
  - Abdominal discomfort [Unknown]
  - Headache [Unknown]
  - Pain in jaw [Unknown]
  - Hot flush [Not Recovered/Not Resolved]
  - Catheter site pain [Unknown]
  - Neck pain [Unknown]
  - Dizziness [Unknown]
  - Diarrhoea [Unknown]
